FAERS Safety Report 13776446 (Version 1)
Quarter: 2017Q3

REPORT INFORMATION
  Report Type: Spontaneous
  Country: IT (occurrence: IT)
  Receive Date: 20170721
  Receipt Date: 20170721
  Transmission Date: 20171127
  Serious: Yes (Other)
  Sender: FDA-Public Use
  Company Number: IT-PFIZER INC-2252913

PATIENT
  Age: 40 Year
  Sex: Male

DRUGS (5)
  1. PROPOFOL FRESENIUS KABI [Suspect]
     Active Substance: PROPOFOL
     Indication: GENERAL ANAESTHESIA
     Dosage: 160 MG, FREQ: TOTAL
     Route: 042
     Dates: start: 20140203, end: 20140203
  2. VISIPAQUE [Suspect]
     Active Substance: IODIXANOL
     Indication: ANGIOGRAM
     Dosage: 10 ML, FREQ: TOTAL
     Route: 042
     Dates: start: 20140203, end: 20140203
  3. HEPARIN SODIUM. [Suspect]
     Active Substance: HEPARIN SODIUM
     Indication: THROMBOSIS PROPHYLAXIS
     Dosage: 5 KIU, FREQ: TOTAL
     Route: 042
     Dates: start: 20140203, end: 20140203
  4. ULTIVA [Suspect]
     Active Substance: REMIFENTANIL HYDROCHLORIDE
     Indication: GENERAL ANAESTHESIA
     Dosage: 60 UG, FREQ: TOTAL
     Route: 042
     Dates: start: 20140203, end: 20140203
  5. NIMBEX [Suspect]
     Active Substance: CISATRACURIUM BESYLATE
     Indication: GENERAL ANAESTHESIA
     Dosage: 12 MG, FREQ: TOTAL
     Route: 042
     Dates: start: 20140203, end: 20140203

REACTIONS (2)
  - Angioedema [Recovered/Resolved]
  - Urticaria [Recovered/Resolved]

NARRATIVE: CASE EVENT DATE: 20140203
